FAERS Safety Report 23890761 (Version 1)
Quarter: 2024Q2

REPORT INFORMATION
  Report Type: Spontaneous
  Country: US (occurrence: US)
  Receive Date: 20240523
  Receipt Date: 20240523
  Transmission Date: 20240716
  Serious: No
  Sender: FDA-Public Use
  Company Number: US-TPU-TPU-2024-00153

PATIENT
  Sex: Female

DRUGS (3)
  1. LIDODERM [Suspect]
     Active Substance: LIDOCAINE
     Indication: Arthralgia
     Dates: start: 2001
  2. LIDODERM [Suspect]
     Active Substance: LIDOCAINE
  3. LIDOCAINE [Suspect]
     Active Substance: LIDOCAINE
     Indication: Arthralgia

REACTIONS (4)
  - Pain [Unknown]
  - Insomnia [Unknown]
  - Drug ineffective for unapproved indication [Unknown]
  - Therapeutic product effect incomplete [Unknown]

NARRATIVE: CASE EVENT DATE: 20240101
